FAERS Safety Report 20613166 (Version 2)
Quarter: 2022Q2

REPORT INFORMATION
  Report Type: Spontaneous
  Country: US (occurrence: US)
  Receive Date: 20220318
  Receipt Date: 20220420
  Transmission Date: 20220721
  Serious: No
  Sender: FDA-Public Use
  Company Number: US-SANOFI-01014856

PATIENT
  Age: 75 Year
  Sex: Female

DRUGS (2)
  1. TOUJEO [Suspect]
     Active Substance: INSULIN GLARGINE
     Indication: Type 2 diabetes mellitus
     Dosage: UNK UNK, QD (30-38 U)
  2. TRULICITY [Concomitant]
     Active Substance: DULAGLUTIDE

REACTIONS (5)
  - Memory impairment [Unknown]
  - Decreased appetite [Recovering/Resolving]
  - Insomnia [Recovering/Resolving]
  - Blood glucose increased [Recovering/Resolving]
  - Product storage error [Unknown]

NARRATIVE: CASE EVENT DATE: 20220413
